FAERS Safety Report 18881842 (Version 1)
Quarter: 2021Q1

REPORT INFORMATION
  Report Type: Spontaneous
  Country: CA (occurrence: CA)
  Receive Date: 20210212
  Receipt Date: 20210212
  Transmission Date: 20210420
  Serious: Yes (Life-Threatening, Hospitalization, Other)
  Sender: FDA-Public Use
  Company Number: CA-SCIEGEN-2021SCILIT00090

PATIENT
  Age: 54 Year
  Sex: Female

DRUGS (6)
  1. METHYLPREDNISOLONE. [Interacting]
     Active Substance: METHYLPREDNISOLONE
     Indication: IMMUNE-MEDIATED MYOSITIS
     Route: 065
  2. PREDNISONE. [Interacting]
     Active Substance: PREDNISONE
     Indication: IMMUNE-MEDIATED MYOSITIS
     Route: 065
  3. BETAMETHASONE VALERATE. [Interacting]
     Active Substance: BETAMETHASONE VALERATE
     Indication: DYSLIPIDAEMIA
     Route: 065
  4. HYDROXYCHLOROQUINE [Interacting]
     Active Substance: HYDROXYCHLOROQUINE
     Indication: IMMUNE-MEDIATED MYOSITIS
     Route: 065
  5. METHOTREXATE. [Interacting]
     Active Substance: METHOTREXATE
     Indication: IMMUNE-MEDIATED MYOSITIS
     Route: 058
  6. ATORVASTATIN CALCIUM. [Suspect]
     Active Substance: ATORVASTATIN CALCIUM
     Indication: DYSLIPIDAEMIA
     Route: 065
     Dates: start: 201710, end: 201811

REACTIONS (3)
  - Dermatomyositis [Recovered/Resolved]
  - Immune-mediated myositis [Recovered/Resolved]
  - Blood creatine phosphokinase increased [Recovered/Resolved]

NARRATIVE: CASE EVENT DATE: 201810
